FAERS Safety Report 7937108-X (Version None)
Quarter: 2011Q4

REPORT INFORMATION
  Report Type: 
  Country: None (occurrence: None)
  Receive Date: 20111123
  Receipt Date: 20111115
  Transmission Date: 20120403
  Serious: Yes (Hospitalization)
  Sender: FDA-Public Use
  Company Number: CA-JNJFOC-20111107500

PATIENT
  Sex: Male
  Weight: 45.7 kg

DRUGS (1)
  1. REMICADE [Suspect]
     Indication: CROHN'S DISEASE
     Dosage: 29 INFUSIONS IN TOTAL
     Dates: start: 20070101

REACTIONS (2)
  - HIP FRACTURE [None]
  - FALL [None]
